FAERS Safety Report 8833997 (Version 1)
Quarter: 2012Q4

REPORT INFORMATION
  Report Type: 
  Country: US (occurrence: US)
  Receive Date: 20121010
  Receipt Date: 20121010
  Transmission Date: 20130627
  Serious: Yes (Other)
  Sender: FDA-Public Use
  Company Number: CHPA2012US020720

PATIENT
  Age: 47 Year
  Sex: Female

DRUGS (3)
  1. BENEFIBER UNKNOWN [Suspect]
     Indication: CROHN^S DISEASE
     Dosage: Unk, Unk
     Route: 048
     Dates: start: 2011, end: 201207
  2. BENEFIBER UNKNOWN [Suspect]
     Dosage: Unk, Unk
     Route: 048
     Dates: start: 201203, end: 201207
  3. CITRUCEL [Suspect]
     Dosage: Unk, Unk
     Dates: start: 20120903, end: 20120917

REACTIONS (5)
  - Crohn^s disease [Recovered/Resolved]
  - Bedridden [Recovered/Resolved]
  - Decreased appetite [Recovered/Resolved]
  - Therapeutic response unexpected [Unknown]
  - Off label use [Unknown]
